FAERS Safety Report 14683006 (Version 2)
Quarter: 2018Q2

REPORT INFORMATION
  Report Type: Report from Study
  Country: US (occurrence: US)
  Receive Date: 20180327
  Receipt Date: 20180415
  Transmission Date: 20180711
  Serious: Yes (Hospitalization)
  Sender: FDA-Public Use
  Company Number: US-TEVA-2018-US-875491

PATIENT
  Age: 69 Year
  Sex: Female

DRUGS (2)
  1. WARFARIN [Concomitant]
     Active Substance: WARFARIN
     Dosage: FOR YEARS
     Route: 065
  2. AUSTEDO [Suspect]
     Active Substance: DEUTETRABENAZINE
     Indication: TARDIVE DYSKINESIA
     Route: 065
     Dates: start: 20180221, end: 201803

REACTIONS (6)
  - Fall [Recovering/Resolving]
  - International normalised ratio increased [Unknown]
  - Prothrombin time prolonged [Recovered/Resolved]
  - Joint injury [Recovering/Resolving]
  - Dehydration [Unknown]
  - Confusional state [Unknown]

NARRATIVE: CASE EVENT DATE: 20180225
